FAERS Safety Report 9402483 (Version 1)
Quarter: 2013Q3

REPORT INFORMATION
  Report Type: Report from Study
  Country: US (occurrence: US)
  Receive Date: 20130716
  Receipt Date: 20130716
  Transmission Date: 20140515
  Serious: Yes (Hospitalization, Other)
  Sender: FDA-Public Use
  Company Number: US-SANOFI-AVENTIS-2013SA070929

PATIENT
  Sex: Female

DRUGS (1)
  1. AUBAGIO [Suspect]
     Route: 048

REACTIONS (2)
  - Visual impairment [Unknown]
  - Abasia [Unknown]
